FAERS Safety Report 18021549 (Version 1)
Quarter: 2020Q3

REPORT INFORMATION
  Report Type: Spontaneous
  Country: FR (occurrence: FR)
  Receive Date: 20200714
  Receipt Date: 20200714
  Transmission Date: 20201103
  Serious: Yes (Death, Other)
  Sender: FDA-Public Use
  Company Number: FR-TEVA-2020-FR-1799198

PATIENT
  Age: 84 Year
  Sex: Female
  Weight: 73 kg

DRUGS (13)
  1. UVEDOSE 100 000 UI, SOLUTION BUVABLE EN AMPOULE [Concomitant]
     Active Substance: CHOLECALCIFEROL
     Dosage: FORM OF ADMIN. TEXT: ORAL SOLUTION IN AMPOULE
  2. NEURONTIN [Concomitant]
     Active Substance: GABAPENTIN
  3. TRAMADOL (CHLORHYDRATE DE) [Suspect]
     Active Substance: TRAMADOL HYDROCHLORIDE
     Indication: PAIN
     Route: 065
     Dates: start: 20180412, end: 20180417
  4. PREVISCAN [Concomitant]
  5. OXYNORM [Concomitant]
     Active Substance: OXYCODONE HYDROCHLORIDE
  6. MOVICOL [Concomitant]
     Active Substance: POLYETHYLENE GLYCOL 3350\POTASSIUM CHLORIDE\SODIUM BICARBONATE\SODIUM CHLORIDE
  7. CORDARONE [Concomitant]
     Active Substance: AMIODARONE HYDROCHLORIDE
     Dosage: FORM OF ADMIN. TEXT : BREAKABLE TABLET
  8. DIFFU K [Suspect]
     Active Substance: POTASSIUM CHLORIDE
     Route: 065
  9. CARDENSIEL 5 MG, COMPRIME PELLICULE SECABLE [Concomitant]
     Active Substance: BISOPROLOL FUMARATE
     Dosage: FORM OF ADMIN. TEXT : TABLET BREAKABLE FILM
  10. LEVOCARNIL 100 MG/ML, SOLUTION BUVABLE [Concomitant]
  11. DOLIPRANE [Concomitant]
     Active Substance: ACETAMINOPHEN
  12. CETIRIZINE (DICHLORHYDRATE DE) [Concomitant]
     Active Substance: CETIRIZINE HYDROCHLORIDE
  13. INEXIUM 40 MG, COMPRIME GASTRO?RESISTANT [Concomitant]
     Active Substance: ESOMEPRAZOLE MAGNESIUM

REACTIONS (2)
  - Confusional state [Recovered/Resolved]
  - Hepatocellular injury [Recovered/Resolved]

NARRATIVE: CASE EVENT DATE: 20180416
